FAERS Safety Report 16927790 (Version 1)
Quarter: 2019Q4

REPORT INFORMATION
  Report Type: Spontaneous
  Country: US (occurrence: US)
  Receive Date: 20191017
  Receipt Date: 20191017
  Transmission Date: 20200122
  Serious: No
  Sender: FDA-Public Use
  Company Number: US-JNJFOC-20191012166

PATIENT
  Sex: Male
  Weight: 90.8 kg

DRUGS (1)
  1. TYLENOL [Suspect]
     Active Substance: ACETAMINOPHEN
     Indication: MYALGIA
     Dosage: VARIES 1-3 DOSAGE FORM AT A TIME IF NEEDED ONLY
     Route: 048

REACTIONS (1)
  - Incorrect dose administered [Unknown]
